FAERS Safety Report 26116486 (Version 1)
Quarter: 2025Q4

REPORT INFORMATION
  Report Type: Spontaneous
  Country: US (occurrence: None)
  Receive Date: 20251202
  Receipt Date: 20251202
  Transmission Date: 20260117
  Serious: Yes (Other)
  Sender: FDA-CTU
  Company Number: None

PATIENT
  Sex: Female

DRUGS (10)
  1. LENALIDOMIDE [Suspect]
     Active Substance: LENALIDOMIDE
     Indication: Plasma cell myeloma
     Dosage: TAKE 1 CAPSULE BY MOUTH DAILY FOR 14 DAYS, THEN 7 DAYS OFF.?
     Route: 048
     Dates: start: 20251028
  2. ASPIRIN [Concomitant]
     Active Substance: ASPIRIN
  3. B COMPLEX CAP [Concomitant]
  4. CLORAZ DIPOT TAB 3.75MG [Concomitant]
  5. JANUMET XR TAB 50-1000 [Concomitant]
  6. METOCLOPRAM TAB 10MG [Concomitant]
  7. ONDANSETRON TAB 4MG ODT [Concomitant]
  8. PANTOPRAZOLE TAB 40MG [Concomitant]
  9. REPAGLINIDE TAB 1 MG [Concomitant]
  10. VITAMIN D3 CHW 1000UNIT [Concomitant]

REACTIONS (11)
  - Fatigue [None]
  - Weight decreased [None]
  - Decreased appetite [None]
  - Nausea [None]
  - Abdominal pain [None]
  - Diarrhoea [None]
  - Constipation [None]
  - Arthralgia [None]
  - Oedema [None]
  - Tachycardia [None]
  - Anaemia [None]
